FAERS Safety Report 4355197-9 (Version None)
Quarter: 2004Q2

REPORT INFORMATION
  Report Type: 
  Country: None (occurrence: None)
  Receive Date: 20040510
  Receipt Date: 20040417
  Transmission Date: 20050107
  Serious: Yes (Hospitalization)
  Sender: FDA-Public Use
  Company Number: PHBS2004BR05290

PATIENT
  Age: 73 Year
  Sex: Female
  Weight: 85 kg

DRUGS (4)
  1. TEGRETOL [Suspect]
     Indication: HERPES VIRUS INFECTION
     Dosage: 1 TABLETS, Q8H
     Route: 048
  2. TEGRETOL [Suspect]
     Dosage: .5 TABLET, Q12H
     Route: 048
  3. ACYCLOVIR [Concomitant]
     Indication: HERPES VIRUS INFECTION
     Dosage: 1 TABLET, Q8H
     Route: 048
  4. AMINOPHYLLINE [Concomitant]
     Indication: BRONCHITIS
     Dosage: 1 TABLET, Q12H WHEN NECESSARY
     Route: 048

REACTIONS (4)
  - DIFFICULTY IN WALKING [None]
  - DIZZINESS [None]
  - FEELING ABNORMAL [None]
  - SPEECH DISORDER [None]
